FAERS Safety Report 8862164 (Version 1)
Quarter: 2012Q4

REPORT INFORMATION
  Report Type: 
  Country: US (occurrence: US)
  Receive Date: 20121026
  Receipt Date: 20121026
  Transmission Date: 20130627
  Serious: Yes (Hospitalization, Other)
  Sender: FDA-Public Use
  Company Number: US-TEVA-366486USA

PATIENT
  Age: 57 Year
  Sex: Male

DRUGS (4)
  1. FLECAINIDE [Concomitant]
     Route: 065
  2. VERAPAMIL [Suspect]
     Route: 065
  3. DABIGATRAN ETEXILATE [Interacting]
     Indication: ATRIAL FIBRILLATION
     Route: 065
  4. ASPIRIN [Concomitant]
     Indication: ATRIAL FIBRILLATION
     Route: 065

REACTIONS (4)
  - Drug interaction [Recovered/Resolved]
  - Carpal tunnel syndrome [Recovered/Resolved]
  - Haemorrhage [Recovered/Resolved]
  - Haematoma [Recovered/Resolved]
